FAERS Safety Report 21447547 (Version 1)
Quarter: 2022Q4

REPORT INFORMATION
  Report Type: Report from Study
  Country: CA (occurrence: None)
  Receive Date: 20221012
  Receipt Date: 20221012
  Transmission Date: 20230113
  Serious: Yes (Hospitalization, Other)
  Sender: FDA-Public Use
  Company Number: 2022A342937

PATIENT
  Sex: Female

DRUGS (9)
  1. FASENRA [Suspect]
     Active Substance: BENRALIZUMAB
     Indication: Asthma
     Dosage: 30.0MG UNKNOWN
     Route: 058
     Dates: start: 20190415
  2. SENOKOT [Concomitant]
     Active Substance: SENNOSIDES
  3. VENTOLIN [Concomitant]
     Active Substance: ALBUTEROL SULFATE
  4. BECLOMETHASONE [Concomitant]
     Active Substance: BECLOMETHASONE
  5. METOPROLOL [Concomitant]
     Active Substance: METOPROLOL
  6. GLYCOPYRRONIUM [Concomitant]
     Active Substance: GLYCOPYRRONIUM
  7. AMLODIPINE [Concomitant]
     Active Substance: AMLODIPINE BESYLATE
  8. VITAMIN D [Concomitant]
     Active Substance: VITAMIN D NOS
  9. AZITHROMYCIN [Concomitant]
     Active Substance: AZITHROMYCIN

REACTIONS (1)
  - Cerebrovascular accident [Unknown]
